FAERS Safety Report 6376094-3 (Version None)
Quarter: 2009Q3

REPORT INFORMATION
  Report Type: 
  Country: None (occurrence: None)
  Receive Date: 20090921
  Receipt Date: 20090916
  Transmission Date: 20100115
  Serious: Yes (Death)
  Sender: FDA-Public Use
  Company Number: 2009SP025628

PATIENT
  Age: 46 Year
  Sex: Male

DRUGS (8)
  1. REMERON [Suspect]
     Indication: ANTIDEPRESSANT THERAPY
     Dosage: 15 MG; QD; PO, 30 MG; QD; PO
     Route: 048
     Dates: start: 20090317, end: 20090319
  2. REMERON [Suspect]
     Indication: ANTIDEPRESSANT THERAPY
     Dosage: 15 MG; QD; PO, 30 MG; QD; PO
     Route: 048
     Dates: start: 20090320, end: 20090708
  3. REMERON [Suspect]
     Indication: ANTIDEPRESSANT THERAPY
     Dosage: 15 MG; QD; PO, 30 MG; QD; PO
     Route: 048
     Dates: start: 20090709, end: 20090710
  4. CYMBALTA [Suspect]
     Indication: ANTIDEPRESSANT THERAPY
     Dosage: 30 MG; QD; PO, 60 MG; QD; PO, 90 MG; QD; PO, 120 MG; QD; PO
     Route: 048
     Dates: start: 20090218, end: 20090223
  5. CYMBALTA [Suspect]
     Indication: ANTIDEPRESSANT THERAPY
     Dosage: 30 MG; QD; PO, 60 MG; QD; PO, 90 MG; QD; PO, 120 MG; QD; PO
     Route: 048
     Dates: start: 20090224, end: 20090417
  6. CYMBALTA [Suspect]
     Indication: ANTIDEPRESSANT THERAPY
     Dosage: 30 MG; QD; PO, 60 MG; QD; PO, 90 MG; QD; PO, 120 MG; QD; PO
     Route: 048
     Dates: start: 20090418, end: 20090427
  7. CYMBALTA [Suspect]
     Indication: ANTIDEPRESSANT THERAPY
     Dosage: 30 MG; QD; PO, 60 MG; QD; PO, 90 MG; QD; PO, 120 MG; QD; PO
     Route: 048
     Dates: start: 20090428, end: 20090710
  8. LORAZEPAM [Concomitant]

REACTIONS (2)
  - ASPHYXIA [None]
  - COMPLETED SUICIDE [None]
